FAERS Safety Report 6313845-8 (Version None)
Quarter: 2009Q3

REPORT INFORMATION
  Report Type: 
  Country: None (occurrence: None)
  Receive Date: 20090814
  Receipt Date: 20090805
  Transmission Date: 20100115
  Serious: Yes (Other)
  Sender: FDA-Public Use
  Company Number: 09ES002995

PATIENT
  Age: 36 Year
  Sex: Female

DRUGS (2)
  1. RANITIDINE HYDROCHLORIDE [Suspect]
     Indication: DYSPEPSIA
     Dosage: 300 MG, SINGLE, ORAL
     Route: 048
  2. IBUPROFEN [Concomitant]

REACTIONS (2)
  - ANAPHYLACTIC REACTION [None]
  - REFUSAL OF TREATMENT BY PATIENT [None]
